FAERS Safety Report 9070932 (Version 1)
Quarter: 2013Q1

REPORT INFORMATION
  Report Type: Report from Study
  Country: JP (occurrence: JP)
  Receive Date: 20130129
  Receipt Date: 20130129
  Transmission Date: 20140127
  Serious: Yes (Other)
  Sender: FDA-Public Use
  Company Number: JP-GLAXOSMITHKLINE-B0555199A

PATIENT
  Age: 17 Year
  Sex: Male
  Weight: 72 kg

DRUGS (9)
  1. ARRANON [Suspect]
     Indication: PRECURSOR T-LYMPHOBLASTIC LYMPHOMA/LEUKAEMIA
     Dosage: 650MGM2 PER DAY
     Route: 042
     Dates: start: 20080606, end: 20080610
  2. INSULIN [Concomitant]
     Indication: DIABETES MELLITUS
     Route: 058
     Dates: start: 20080601, end: 20080620
  3. NEO-MINOPHAGEN-C [Concomitant]
     Indication: LIVER DISORDER
     Route: 042
     Dates: start: 20080601, end: 20080621
  4. SEFMAZON [Concomitant]
     Indication: INFECTION PROPHYLAXIS
     Dates: start: 20080605, end: 20080621
  5. FUNGUARD [Concomitant]
     Indication: INFECTION PROPHYLAXIS
     Route: 042
     Dates: start: 20080601, end: 20080621
  6. NEUQUINON [Concomitant]
     Indication: CARDIAC FAILURE CONGESTIVE
     Route: 048
     Dates: start: 20080601, end: 20080621
  7. VICCLOX [Concomitant]
     Indication: INFECTION PROPHYLAXIS
     Route: 048
     Dates: start: 20080601, end: 20080621
  8. DAIPHEN [Concomitant]
     Indication: INFECTION PROPHYLAXIS
     Route: 048
     Dates: start: 20080601, end: 20080621
  9. CRAVIT [Concomitant]
     Route: 065

REACTIONS (6)
  - Polyneuropathy [Recovering/Resolving]
  - White blood cell count decreased [Not Recovered/Not Resolved]
  - Neutrophil count decreased [Not Recovered/Not Resolved]
  - Hyperkalaemia [Recovered/Resolved]
  - Nausea [Recovered/Resolved]
  - Anaemia [Recovered/Resolved]
